FAERS Safety Report 12231634 (Version 1)
Quarter: 2016Q2

REPORT INFORMATION
  Report Type: Spontaneous
  Country: US (occurrence: US)
  Receive Date: 20160401
  Receipt Date: 20160401
  Transmission Date: 20160815
  Serious: No
  Sender: FDA-Public Use
  Company Number: US-BAYER-2016-056710

PATIENT
  Age: 77 Year
  Sex: Female
  Weight: 46.26 kg

DRUGS (2)
  1. ALEVE COLD + SINUS [Suspect]
     Active Substance: NAPROXEN SODIUM\PSEUDOEPHEDRINE HYDROCHLORIDE
     Indication: NASOPHARYNGITIS
     Dosage: 1 DF, BID
     Route: 048
     Dates: start: 20160321, end: 20160321
  2. ALEVE [Suspect]
     Active Substance: NAPROXEN SODIUM
     Dosage: 1 DF, PRN
     Route: 048

REACTIONS (2)
  - Heart rate increased [Recovered/Resolved]
  - Therapeutic response unexpected [None]

NARRATIVE: CASE EVENT DATE: 20160321
